FAERS Safety Report 5782150-0 (Version None)
Quarter: 2008Q2

REPORT INFORMATION
  Report Type: 
  Country: None (occurrence: None)
  Receive Date: 20080623
  Receipt Date: 20080612
  Transmission Date: 20081010
  Serious: Yes (Other)
  Sender: FDA-Public Use
  Company Number: FR-ASTRAZENECA-2008CG00924

PATIENT
  Age: 387 Month
  Sex: Male
  Weight: 82 kg

DRUGS (7)
  1. DIPRIVAN [Suspect]
     Route: 042
     Dates: start: 20080401, end: 20080401
  2. ATARAX [Suspect]
     Route: 048
     Dates: start: 20080401, end: 20080401
  3. RAPIFEN [Suspect]
     Route: 042
     Dates: start: 20080401, end: 20080401
  4. NIMBEX [Suspect]
     Route: 042
     Dates: start: 20080401, end: 20080401
  5. CEFOTAXIME SODIUM [Concomitant]
  6. SOLU-MEDROL [Concomitant]
  7. PERFALGAN [Concomitant]

REACTIONS (2)
  - DEPRESSED LEVEL OF CONSCIOUSNESS [None]
  - LARYNGOSPASM [None]
